FAERS Safety Report 18027690 (Version 1)
Quarter: 2020Q3

REPORT INFORMATION
  Report Type: Spontaneous
  Country: US (occurrence: US)
  Receive Date: 20200716
  Receipt Date: 20200716
  Transmission Date: 20201103
  Serious: No
  Sender: FDA-Public Use
  Company Number: US-TAKEDA-2020TUS030685

PATIENT
  Age: 49 Year
  Sex: Female

DRUGS (1)
  1. ALUNBRIG [Suspect]
     Active Substance: BRIGATINIB
     Indication: NEOPLASM MALIGNANT
     Dosage: 90 MILLIGRAM, QD
     Route: 048
     Dates: start: 20200708

REACTIONS (3)
  - Nausea [Unknown]
  - Product administration error [Unknown]
  - Headache [Unknown]

NARRATIVE: CASE EVENT DATE: 20200708
